FAERS Safety Report 5856474-2 (Version None)
Quarter: 2008Q3

REPORT INFORMATION
  Report Type: 
  Country: None (occurrence: None)
  Receive Date: 20080825
  Receipt Date: 20080514
  Transmission Date: 20090109
  Serious: No
  Sender: FDA-Public Use
  Company Number: A0728868A

PATIENT
  Sex: Female

DRUGS (2)
  1. VERAMYST [Suspect]
     Route: 045
  2. UNKNOWN [Concomitant]

REACTIONS (2)
  - EPISTAXIS [None]
  - NASAL ULCER [None]
